FAERS Safety Report 19391148 (Version 1)
Quarter: 2021Q2

REPORT INFORMATION
  Report Type: Spontaneous
  Country: RU (occurrence: RU)
  Receive Date: 20210608
  Receipt Date: 20210608
  Transmission Date: 20210717
  Serious: Yes (Other)
  Sender: FDA-Public Use
  Company Number: NVSC2021RU123910

PATIENT
  Age: 15 Year
  Sex: Male
  Weight: 37 kg

DRUGS (1)
  1. VOTRIENT [Suspect]
     Active Substance: PAZOPANIB HYDROCHLORIDE
     Indication: DESMOID TUMOUR
     Dosage: 600 MG, QD
     Route: 065
     Dates: start: 20200427, end: 20210301

REACTIONS (2)
  - Gastrointestinal disorder [Recovering/Resolving]
  - Arthralgia [Recovering/Resolving]

NARRATIVE: CASE EVENT DATE: 20200701
